FAERS Safety Report 4826948-1 (Version None)
Quarter: 2005Q4

REPORT INFORMATION
  Report Type: 
  Country: None (occurrence: None)
  Receive Date: 20051114
  Receipt Date: 20051109
  Transmission Date: 20060501
  Serious: Yes (Other)
  Sender: FDA-Public Use
  Company Number: DE-AVENTIS-200512542DE

PATIENT
  Age: 70 Year
  Sex: Male

DRUGS (5)
  1. TAXOTERE [Suspect]
     Indication: PROSTATE CANCER
     Route: 042
  2. TAXOTERE [Suspect]
     Indication: METASTASIS
     Route: 042
  3. BONDRONAT [Suspect]
     Dosage: DOSE: EVERY 2 TO 4 WEEKS
     Route: 042
  4. DEXAMETHASONE [Suspect]
     Route: 048
  5. ESTRAMUSTIN [Concomitant]

REACTIONS (1)
  - OSTEONECROSIS [None]
